FAERS Safety Report 17268434 (Version 1)
Quarter: 2020Q1

REPORT INFORMATION
  Report Type: Spontaneous
  Country: US (occurrence: US)
  Receive Date: 20191223
  Receipt Date: 20191223
  Transmission Date: 20200409
  Serious: Yes (Hospitalization)
  Sender: FDA-Public Use
  Company Number: None

PATIENT
  Sex: Female

DRUGS (14)
  1. LIDO/PRILOCN [Concomitant]
  2. BENZONATATE. [Concomitant]
     Active Substance: BENZONATATE
  3. DRONABINOL. [Concomitant]
     Active Substance: DRONABINOL
  4. OXYCODONE [Concomitant]
     Active Substance: OXYCODONE
  5. DEXAMETHASON [Concomitant]
     Active Substance: DEXAMETHASONE
  6. XALKORI [Suspect]
     Active Substance: CRIZOTINIB
     Indication: LUNG NEOPLASM MALIGNANT
     Route: 048
     Dates: start: 20191002
  7. ENOXAPARAIN [Concomitant]
  8. PROCHLORPER [Concomitant]
  9. SMZ/TMP DS [Concomitant]
     Active Substance: SULFAMETHOXAZOLE\TRIMETHOPRIM
  10. ONDANSETRON [Concomitant]
     Active Substance: ONDANSETRON
  11. VIRTUSSIN AC [Concomitant]
     Active Substance: CODEINE PHOSPHATE\GUAIFENESIN
  12. MORPHINE [Concomitant]
     Active Substance: MORPHINE
  13. FOLIC ACID. [Concomitant]
     Active Substance: FOLIC ACID
  14. XARELTO [Concomitant]
     Active Substance: RIVAROXABAN

REACTIONS (1)
  - Pneumonitis [None]
